FAERS Safety Report 13735844 (Version 1)
Quarter: 2017Q3

REPORT INFORMATION
  Report Type: Spontaneous
  Country: US (occurrence: US)
  Receive Date: 20170707
  Receipt Date: 20170707
  Transmission Date: 20171127
  Serious: No
  Sender: FDA-Public Use
  Company Number: None

PATIENT
  Age: 64 Year
  Sex: Female

DRUGS (1)
  1. JAKAFI [Suspect]
     Active Substance: RUXOLITINIB
     Indication: LYMPHOPROLIFERATIVE DISORDER
     Route: 048
     Dates: start: 20161220

REACTIONS (3)
  - Oropharyngeal pain [None]
  - Feeling abnormal [None]
  - Sensation of foreign body [None]

NARRATIVE: CASE EVENT DATE: 20170705
